FAERS Safety Report 11722850 (Version 2)
Quarter: 2015Q4

REPORT INFORMATION
  Report Type: Spontaneous
  Country: FR (occurrence: FR)
  Receive Date: 20151111
  Receipt Date: 20151222
  Transmission Date: 20160304
  Serious: Yes (Hospitalization)
  Sender: FDA-Public Use
  Company Number: FR-MALLINCKRODT-T201505130

PATIENT
  Age: 85 Year
  Sex: Female

DRUGS (4)
  1. INEXIUM [Suspect]
     Active Substance: ESOMEPRAZOLE
     Indication: ABDOMINAL PAIN
     Dosage: 40 MG, UNK
     Route: 042
     Dates: start: 20151012, end: 20151012
  2. OFIRMEV [Suspect]
     Active Substance: ACETAMINOPHEN
     Indication: ABDOMINAL PAIN
     Dosage: UNK, UNK
     Route: 042
     Dates: start: 20151012
  3. SPASFON [Suspect]
     Active Substance: PHLOROGLUCINOL
     Indication: ABDOMINAL PAIN
     Dosage: 2 DF, UNK
     Route: 042
     Dates: start: 20151012, end: 20151012
  4. IOMERON [Suspect]
     Active Substance: IOMEPROL
     Indication: COMPUTERISED TOMOGRAM
     Dosage: UNK, UNK
     Route: 065
     Dates: start: 20151012

REACTIONS (3)
  - Hypotension [Recovered/Resolved]
  - Oral pain [Recovered/Resolved]
  - Urticaria [Recovered/Resolved]

NARRATIVE: CASE EVENT DATE: 20151012
